FAERS Safety Report 5104520-6 (Version None)
Quarter: 2006Q3

REPORT INFORMATION
  Report Type: 
  Country: None (occurrence: None)
  Receive Date: 20060908
  Receipt Date: 20060908
  Transmission Date: 20061208
  Serious: No
  Sender: FDA-Public Use
  Company Number: None

PATIENT
  Age: 49 Year
  Sex: Male
  Weight: 165.1 kg

DRUGS (2)
  1. GABAPENTIN [Suspect]
     Indication: ILL-DEFINED DISORDER
     Dosage: 600 MILLIGRAMS 1TABET 2TWICE A DA PO
     Route: 048
     Dates: start: 20050108, end: 20050405
  2. GABAPENTIN [Suspect]
     Indication: NECK PAIN
     Dosage: 600 MILLIGRAMS 1TABET 2TWICE A DA PO
     Route: 048
     Dates: start: 20050108, end: 20050405

REACTIONS (4)
  - DRUG EFFECT DECREASED [None]
  - DRUG INTOLERANCE [None]
  - PHARMACEUTICAL PRODUCT COMPLAINT [None]
  - THERAPEUTIC RESPONSE UNEXPECTED WITH DRUG SUBSTITUTION [None]
